FAERS Safety Report 7421693-0 (Version None)
Quarter: 2011Q2

REPORT INFORMATION
  Report Type: 
  Country: None (occurrence: None)
  Receive Date: 20110418
  Receipt Date: 20110411
  Transmission Date: 20111010
  Serious: Yes (Other)
  Sender: FDA-Public Use
  Company Number: ES-PFIZER INC-2011079959

PATIENT
  Age: 24 Year
  Sex: Female

DRUGS (2)
  1. SYNAREL [Suspect]
     Indication: OVARIAN HYPERSTIMULATION SYNDROME
  2. SYNAREL [Suspect]
     Indication: ENDOMETRIOSIS
     Dosage: 200 UG, 2X/DAY
     Route: 045
     Dates: start: 20091113, end: 20100324

REACTIONS (5)
  - DECREASED APPETITE [None]
  - WEIGHT DECREASED [None]
  - VOMITING [None]
  - GINGIVAL DISORDER [None]
  - FATIGUE [None]
